FAERS Safety Report 12341355 (Version 1)
Quarter: 2016Q2

REPORT INFORMATION
  Report Type: Spontaneous
  Country: US (occurrence: None)
  Receive Date: 20160505
  Receipt Date: 20160505
  Transmission Date: 20160815
  Serious: Yes (Other)
  Sender: FDA-Public Use
  Company Number: None

PATIENT
  Age: 86 Year
  Sex: Female
  Weight: 65.77 kg

DRUGS (2)
  1. EYE DROPS [Concomitant]
     Active Substance: TETRAHYDROZOLINE HYDROCHLORIDE
  2. EAR WAX KIT WELL AT WALGREENS [Suspect]
     Active Substance: CARBAMIDE PEROXIDE
     Indication: CERUMEN REMOVAL

REACTIONS (3)
  - Eye pain [None]
  - Incorrect route of drug administration [None]
  - Product packaging confusion [None]

NARRATIVE: CASE EVENT DATE: 20160429
